FAERS Safety Report 16855782 (Version 1)
Quarter: 2019Q4

REPORT INFORMATION
  Report Type: Spontaneous
  Country: US (occurrence: US)
  Receive Date: 20190926
  Receipt Date: 20190926
  Transmission Date: 20200122
  Serious: Yes (Life-Threatening, Hospitalization, Disabling)
  Sender: FDA-Public Use
  Company Number: None

PATIENT
  Age: 65 Year
  Weight: 100 kg

DRUGS (2)
  1. EXEMESTANE. [Suspect]
     Active Substance: EXEMESTANE
     Indication: BREAST CANCER METASTATIC
     Route: 048
     Dates: start: 20190828, end: 20190908
  2. EVEROLIMUS. [Suspect]
     Active Substance: EVEROLIMUS
     Indication: BREAST CANCER METASTATIC
     Route: 048
     Dates: start: 20190828, end: 20190908

REACTIONS (11)
  - Hypertensive emergency [None]
  - Thrombotic microangiopathy [None]
  - Anaemia [None]
  - Nausea [None]
  - Therapy cessation [None]
  - Interstitial lung disease [None]
  - Thrombocytopenia [None]
  - Vomiting [None]
  - Acute respiratory failure [None]
  - Acute pulmonary oedema [None]
  - Renal failure [None]

NARRATIVE: CASE EVENT DATE: 20190910
